FAERS Safety Report 14014527 (Version 3)
Quarter: 2017Q4

REPORT INFORMATION
  Report Type: Spontaneous
  Country: JP (occurrence: JP)
  Receive Date: 20170927
  Receipt Date: 20171102
  Transmission Date: 20180321
  Serious: Yes (Hospitalization)
  Sender: FDA-Public Use
  Company Number: JP-EMD SERONO-8183359

PATIENT
  Age: 40 Year
  Sex: Male
  Weight: 81 kg

DRUGS (3)
  1. GONAL-F RFF [Suspect]
     Active Substance: FOLLITROPIN
     Indication: OLFACTO GENITAL DYSPLASIA
     Route: 058
     Dates: start: 20121006, end: 201708
  2. CHORIOGONADOTROPIN ALFA [Suspect]
     Active Substance: CHORIOGONADOTROPIN ALFA
     Indication: OLFACTO GENITAL DYSPLASIA
     Route: 058
     Dates: start: 201007, end: 20170826
  3. GONAL-F RFF [Suspect]
     Active Substance: FOLLITROPIN
     Indication: OLFACTO GENITAL DYSPLASIA
     Dosage: VIAL
     Route: 058
     Dates: start: 20100911, end: 201708

REACTIONS (1)
  - Pulmonary embolism [Recovering/Resolving]

NARRATIVE: CASE EVENT DATE: 201707
